FAERS Safety Report 10261908 (Version 1)
Quarter: 2014Q2

REPORT INFORMATION
  Report Type: Report from Study
  Country: TN (occurrence: TN)
  Receive Date: 20140626
  Receipt Date: 20140626
  Transmission Date: 20141212
  Serious: Yes (Death)
  Sender: FDA-Public Use
  Company Number: TN-SA-2014SA081574

PATIENT
  Age: 68 Year
  Sex: Male

DRUGS (5)
  1. PLAVIX [Suspect]
     Indication: MYOCARDIAL INFARCTION
     Dosage: DOSE:75 (UNITS NOT SPECIFIED)
     Route: 048
     Dates: start: 20130614, end: 20130720
  2. ASPIRIN [Concomitant]
     Route: 048
  3. CAPTOPRIL [Concomitant]
     Route: 048
  4. CORVASAL [Concomitant]
     Route: 048
  5. HYPOTEN [Concomitant]
     Route: 048

REACTIONS (1)
  - Lung neoplasm malignant [Fatal]
